FAERS Safety Report 8845697 (Version 19)
Quarter: 2014Q1

REPORT INFORMATION
  Report Type: Report from Study
  Country: US (occurrence: US)
  Receive Date: 20121017
  Receipt Date: 20140331
  Transmission Date: 20141002
  Serious: Yes (Hospitalization, Disabling, Other)
  Sender: FDA-Public Use
  Company Number: US-ROCHE-1109766

PATIENT
  Age: 49 Year
  Sex: Male
  Weight: 105.7 kg

DRUGS (38)
  1. NORMAL SALINE [Concomitant]
     Dosage: 1 OTHER
     Route: 042
     Dates: start: 20120906, end: 20120906
  2. NORMAL SALINE [Concomitant]
     Dosage: 1 OTHER
     Route: 042
     Dates: start: 20120918, end: 20120918
  3. NORMAL SALINE [Concomitant]
     Dosage: 1 OTHER
     Route: 042
     Dates: start: 20120919, end: 20120921
  4. NORMAL SALINE [Concomitant]
     Dosage: 1 OTHER
     Route: 042
     Dates: start: 20120924, end: 20120924
  5. NORMAL SALINE [Concomitant]
     Dosage: 1 OTHER
     Route: 042
     Dates: start: 20121003, end: 20121003
  6. NORMAL SALINE [Concomitant]
     Dosage: 1 OTHER
     Route: 042
     Dates: start: 20120904, end: 20120904
  7. VANCOMYCIN [Concomitant]
     Indication: INFECTION PROPHYLAXIS
     Route: 050
     Dates: start: 20120828, end: 20120828
  8. FENTANYL [Concomitant]
     Indication: MYALGIA
     Route: 062
     Dates: start: 20121019
  9. FENTANYL [Concomitant]
     Indication: ARTHRALGIA
  10. GABAPENTIN [Concomitant]
     Indication: ARTHRALGIA
     Route: 048
     Dates: start: 20121019
  11. DILAUDID [Concomitant]
     Indication: ARTHRALGIA
     Route: 048
     Dates: start: 20121019
  12. CYMBALTA [Concomitant]
     Indication: ANXIETY
     Route: 048
     Dates: start: 20121019
  13. MPDL3280A [Suspect]
     Indication: METASTATIC MALIGNANT MELANOMA
     Dosage: LAST DOSE PRIOR TO DEHYDRATION, RENAL INSUFFICIENCY, TRANSAMINITIS, INCREASED AST, SYNCOPE, FEVER (1
     Route: 042
     Dates: start: 20120813, end: 20120904
  14. MPDL3280A [Suspect]
     Dosage: MOST RECENT DOSE PRIOR TO NAUSEA AND VOMITING: 2186MG ON 12/SEP/2012
     Route: 042
     Dates: start: 20120912
  15. VEMURAFENIB [Suspect]
     Indication: METASTATIC MALIGNANT MELANOMA
     Dosage: LAST DOSE PRIOR TO RI AND FEVER (1):13/AUG2012. LAST DOSE PRIOR TO INC AST, FEVER (2), SYNCOPE: 22/A
     Route: 048
     Dates: start: 20120813
  16. VEMURAFENIB [Suspect]
     Dosage: LAST DOSE PRIOR TO VOMITING AND PAIN: 26/SEP/2012.
     Route: 048
     Dates: start: 20120918, end: 20120929
  17. VEMURAFENIB [Suspect]
     Dosage: MOST RECENT DOSE PRIOR TO DEHYDRATION: 720 MG ON 2/OCT/2012.?MOST RECENT DOSE PRIOR TO NAUSEA: 480MG
     Route: 048
     Dates: end: 20121002
  18. IBUPROFEN [Concomitant]
     Indication: HEADACHE
     Route: 048
     Dates: start: 20000601, end: 20121104
  19. IBUPROFEN [Concomitant]
     Indication: CONSTIPATION
     Route: 048
     Dates: start: 20120904
  20. ZITHROMAX [Concomitant]
     Indication: OROPHARYNGEAL PAIN
     Route: 048
     Dates: start: 20120822, end: 20120825
  21. MICAFUNGIN [Concomitant]
     Indication: OROPHARYNGEAL PAIN
     Route: 042
     Dates: start: 20120829, end: 20120831
  22. SODIUM BICARBONATE [Concomitant]
     Dosage: ON HOLD
     Route: 042
  23. HYDROCODONE HCL [Concomitant]
     Indication: ARTHRALGIA
     Route: 048
     Dates: start: 20120827, end: 20120901
  24. HYDROCODONE HCL [Concomitant]
     Route: 048
     Dates: start: 20121014, end: 20121014
  25. HYDROXYZINE [Concomitant]
  26. ONDANSETRON [Concomitant]
     Indication: NAUSEA
     Route: 048
     Dates: start: 20120919, end: 20121104
  27. DAPTOMYCIN [Concomitant]
  28. CEFEPIME [Concomitant]
  29. ROBITUSSIN AC (UNITED STATES) [Concomitant]
     Indication: COUGH
     Route: 048
     Dates: start: 20120919, end: 20120922
  30. DULCOLAX (BISACODYL) [Concomitant]
     Indication: CONSTIPATION
     Route: 048
     Dates: start: 20120903
  31. PROTONIX (UNITED STATES) [Concomitant]
     Indication: GASTROOESOPHAGEAL REFLUX DISEASE
     Route: 048
     Dates: start: 20120918
  32. ATIVAN [Concomitant]
     Indication: ANXIETY
     Route: 048
     Dates: start: 20120918
  33. PRILOSEC [Concomitant]
     Indication: GASTROOESOPHAGEAL REFLUX DISEASE
     Route: 048
     Dates: start: 20120919
  34. DEXTROSE [Concomitant]
     Route: 042
     Dates: start: 20120829, end: 20120831
  35. ZOFRAN [Concomitant]
     Indication: NAUSEA
     Route: 048
     Dates: start: 20120827
  36. IMODIUM [Concomitant]
     Indication: DIARRHOEA
     Route: 048
     Dates: start: 20120919
  37. PEPTO-BISMOL [Concomitant]
     Indication: DIARRHOEA
     Route: 048
     Dates: start: 20120921
  38. NORMAL SALINE [Concomitant]
     Indication: RENAL FAILURE
     Dosage: 1 OTHER
     Route: 042
     Dates: start: 20121003, end: 20121003

REACTIONS (5)
  - Dehydration [Recovered/Resolved]
  - Vomiting [Recovered/Resolved]
  - Nausea [Not Recovered/Not Resolved]
  - Transaminases increased [Recovered/Resolved]
  - Pyrexia [Recovered/Resolved]
